FAERS Safety Report 8029945-0 (Version None)
Quarter: 2012Q1

REPORT INFORMATION
  Report Type: 
  Country: None (occurrence: None)
  Receive Date: 20120109
  Receipt Date: 20120104
  Transmission Date: 20120608
  Serious: Yes (Other)
  Sender: FDA-Public Use
  Company Number: US-PFIZER INC-2012003493

PATIENT
  Sex: Female

DRUGS (1)
  1. CHANTIX [Suspect]
     Dosage: UNK
     Dates: start: 20070322

REACTIONS (9)
  - LOSS OF CONSCIOUSNESS [None]
  - IMPAIRED DRIVING ABILITY [None]
  - EMOTIONAL DISTRESS [None]
  - PARANOIA [None]
  - DELUSION [None]
  - MENTAL DISORDER [None]
  - HALLUCINATION [None]
  - DEPRESSION [None]
  - ANXIETY [None]
